FAERS Safety Report 5828242-9 (Version None)
Quarter: 2008Q3

REPORT INFORMATION
  Report Type: 
  Country: None (occurrence: None)
  Receive Date: 20080729
  Receipt Date: 20080714
  Transmission Date: 20090109
  Serious: Yes (Hospitalization, Other)
  Sender: FDA-Public Use
  Company Number: WAES 0807USA02660

PATIENT
  Age: 81 Year
  Sex: Female
  Weight: 58.0604 kg

DRUGS (8)
  1. VYTORIN [Suspect]
     Indication: HYPERCHOLESTEROLAEMIA
     Dosage: PO
  2. TAB TIPIFARNIB 600 MG [Suspect]
     Indication: ACUTE MYELOID LEUKAEMIA
     Dosage: 600 MG/BID/PO
     Route: 048
     Dates: start: 20080611, end: 20080620
  3. TAB TIPIFARNIB 600 MG [Suspect]
     Indication: ACUTE MYELOID LEUKAEMIA
     Dosage: 600 MG/BID/PO
     Route: 048
     Dates: start: 20080505
  4. ETOPOSIDE [Suspect]
     Indication: ACUTE MYELOID LEUKAEMIA
     Dosage: 100 MG/1X/PO
     Route: 048
     Dates: end: 20080620
  5. ETOPOSIDE [Suspect]
     Indication: ACUTE MYELOID LEUKAEMIA
     Dosage: 100 MG/1X/PO
     Route: 048
     Dates: start: 20080505
  6. ASPIRIN TAB [Suspect]
     Dosage: PO
     Route: 048
  7. PRINIVIL [Suspect]
     Indication: HYPERTENSION
     Dosage: PO
     Route: 048
  8. TOPROL-XL [Suspect]
     Indication: HYPERTENSION
     Dosage: PO
     Route: 048

REACTIONS (9)
  - ARTHRALGIA [None]
  - ASTHENIA [None]
  - BLOOD CREATININE INCREASED [None]
  - DIARRHOEA [None]
  - ERUCTATION [None]
  - FATIGUE [None]
  - HYPERURICAEMIA [None]
  - NAUSEA [None]
  - VOMITING [None]
